FAERS Safety Report 19573564 (Version 1)
Quarter: 2021Q3

REPORT INFORMATION
  Report Type: Spontaneous
  Country: IE (occurrence: IE)
  Receive Date: 20210717
  Receipt Date: 20210717
  Transmission Date: 20211014
  Serious: Yes (Other)
  Sender: FDA-Public Use
  Company Number: IE-ACCORD-231539

PATIENT
  Sex: Female

DRUGS (3)
  1. APIXABAN [Suspect]
     Active Substance: APIXABAN
     Indication: PRODUCT USED FOR UNKNOWN INDICATION
  2. ELTROXIN [Concomitant]
     Active Substance: LEVOTHYROXINE
     Dosage: 100 MICROGRAM TABLETS
  3. LOSARTAN. [Concomitant]
     Active Substance: LOSARTAN
     Dosage: 50 (NO UNITS PROVIDED)

REACTIONS (1)
  - Transient ischaemic attack [Recovered/Resolved]
